FAERS Safety Report 5035038-7 (Version None)
Quarter: 2006Q2

REPORT INFORMATION
  Report Type: 
  Country: None (occurrence: None)
  Receive Date: 20060622
  Receipt Date: 20060622
  Transmission Date: 20061013
  Serious: Yes (Death)
  Sender: FDA-Public Use
  Company Number: None

PATIENT
  Age: 76 Year
  Sex: Female
  Weight: 101.6057 kg

DRUGS (1)
  1. PRECEDEX [Suspect]
     Indication: INDUCTION OF ANAESTHESIA
     Dosage: 25C ONCE IV BOLUS
     Route: 040
     Dates: start: 20060424, end: 20060424

REACTIONS (3)
  - CARDIAC ARREST [None]
  - DYSPNOEA [None]
  - HYPOTENSION [None]
